FAERS Safety Report 18116255 (Version 8)
Quarter: 2021Q2

REPORT INFORMATION
  Report Type: Spontaneous
  Country: US (occurrence: US)
  Receive Date: 20200806
  Receipt Date: 20210505
  Transmission Date: 20210717
  Serious: Yes (Hospitalization)
  Sender: FDA-Public Use
  Company Number: US-SA-2020SA202374

PATIENT
  Age: 51 Year
  Sex: Female

DRUGS (6)
  1. AUBAGIO [Suspect]
     Active Substance: TERIFLUNOMIDE
     Dosage: 14 MG, QD
     Route: 048
     Dates: start: 2020, end: 2021
  2. COVID?19 VACCINE NOS. [Suspect]
     Active Substance: COVID-19 VACCINE NOS
     Route: 065
  3. QUETIAPINE. [Concomitant]
     Active Substance: QUETIAPINE
     Dosage: 100 MG
  4. QUETIAPINE. [Concomitant]
     Active Substance: QUETIAPINE
     Dosage: 200 MG
  5. AUBAGIO [Suspect]
     Active Substance: TERIFLUNOMIDE
     Indication: MULTIPLE SCLEROSIS
     Dosage: 14 MG, QD
     Route: 048
     Dates: start: 20200529
  6. AUBAGIO [Suspect]
     Active Substance: TERIFLUNOMIDE
     Dosage: 14 MG, QD
     Route: 048
     Dates: start: 20200603, end: 2020

REACTIONS (16)
  - Gait disturbance [Unknown]
  - Flushing [Unknown]
  - Fatigue [Recovered/Resolved]
  - Hypertension [Recovered/Resolved]
  - Nausea [Unknown]
  - Fall [Not Recovered/Not Resolved]
  - Paraesthesia [Recovered/Resolved]
  - Muscular weakness [Unknown]
  - Alopecia [Unknown]
  - Product dose omission in error [Unknown]
  - Scar [Unknown]
  - Migraine [Unknown]
  - Pruritus [Unknown]
  - Mobility decreased [Unknown]
  - Head injury [Unknown]
  - Pain [Unknown]

NARRATIVE: CASE EVENT DATE: 2020
